FAERS Safety Report 17618729 (Version 1)
Quarter: 2020Q2

REPORT INFORMATION
  Report Type: Spontaneous
  Country: US (occurrence: US)
  Receive Date: 20200402
  Receipt Date: 20200402
  Transmission Date: 20200713
  Serious: No
  Sender: FDA-Public Use
  Company Number: US-PFIZER INC-2020136807

PATIENT
  Age: 76 Year
  Sex: Female

DRUGS (2)
  1. TAVABOROLE [Suspect]
     Active Substance: TAVABOROLE
     Dosage: UNK
  2. TERBINAFINE. [Suspect]
     Active Substance: TERBINAFINE
     Dosage: UNK

REACTIONS (1)
  - Drug ineffective [Unknown]
